FAERS Safety Report 7083943-2 (Version None)
Quarter: 2010Q4

REPORT INFORMATION
  Report Type: 
  Country: None (occurrence: None)
  Receive Date: 20101104
  Receipt Date: 20101025
  Transmission Date: 20110411
  Serious: Yes (Death, Hospitalization)
  Sender: FDA-Public Use
  Company Number: IL-ACTELION-A-CH2010-40490

PATIENT
  Age: 68 Year
  Sex: Female

DRUGS (6)
  1. TRACLEER [Suspect]
     Indication: PULMONARY ARTERIAL HYPERTENSION
     Dosage: 62.5 MG, BID
     Route: 048
     Dates: start: 20100901
  2. BISOPROLOL FUMARATE [Concomitant]
  3. FUROSEMIDE [Concomitant]
  4. TRAMADOL HCL [Concomitant]
  5. LORAZEPAM [Concomitant]
  6. ENALAPRIL MALEATE [Concomitant]

REACTIONS (6)
  - HYPOTENSION [None]
  - PNEUMONIA [None]
  - PYREXIA [None]
  - SEPSIS [None]
  - THROMBOCYTOPENIA [None]
  - TRANSFUSION [None]
